FAERS Safety Report 12694239 (Version 1)
Quarter: 2016Q3

REPORT INFORMATION
  Report Type: Spontaneous
  Country: US (occurrence: US)
  Receive Date: 20160829
  Receipt Date: 20160829
  Transmission Date: 20161109
  Serious: No
  Sender: FDA-Public Use
  Company Number: US-PFIZER INC-2016404267

PATIENT
  Age: 79 Year
  Sex: Female
  Weight: 77 kg

DRUGS (9)
  1. ADVIL [Suspect]
     Active Substance: IBUPROFEN
     Indication: FALL
     Dosage: 2 DF, 1X/DAY, EVERY NIGHT
     Route: 048
  2. ADVIL [Suspect]
     Active Substance: IBUPROFEN
     Indication: LOWER LIMB FRACTURE
  3. BAYER LOW DOSE [Concomitant]
     Active Substance: ASPIRIN
     Dosage: UNK
  4. PRILOSEC [Concomitant]
     Active Substance: OMEPRAZOLE MAGNESIUM
     Dosage: UNK
  5. VITAMIN B12 [Suspect]
     Active Substance: CYANOCOBALAMIN
     Dosage: 2500 UG, UNK
     Dates: start: 201608
  6. CALCIUM + D3 [Concomitant]
     Active Substance: CALCIUM\CHOLECALCIFEROL
     Dosage: 1200 MG /1000 IU
  7. PRESERVISION AREDS 2 [Concomitant]
     Indication: VITAMIN SUPPLEMENTATION
     Dosage: 2 DF, DAILY
  8. VITAMIN B12 [Suspect]
     Active Substance: CYANOCOBALAMIN
     Dosage: 1000 UG, UNK
     Dates: start: 2016, end: 201608
  9. CETIRIZINE HCL [Suspect]
     Active Substance: CETIRIZINE HYDROCHLORIDE
     Indication: HYPERSENSITIVITY
     Dosage: 10 MG, 1X/DAY, EVERY NIGHT
     Route: 048
     Dates: start: 2016

REACTIONS (4)
  - Visual impairment [Not Recovered/Not Resolved]
  - Expired product administered [Unknown]
  - Condition aggravated [Unknown]
  - Product use issue [Unknown]

NARRATIVE: CASE EVENT DATE: 2016
